FAERS Safety Report 7821353-8 (Version None)
Quarter: 2011Q4

REPORT INFORMATION
  Report Type: 
  Country: None (occurrence: None)
  Receive Date: 20111018
  Receipt Date: 20110725
  Transmission Date: 20120403
  Serious: No
  Sender: FDA-Public Use
  Company Number: US-ASTRAZENECA-2011SE38335

PATIENT
  Age: 63 Year
  Sex: Male

DRUGS (3)
  1. SPIRIVA [Concomitant]
  2. ALBUTEROL [Concomitant]
     Indication: RESPIRATORY THERAPY
  3. SYMBICORT [Suspect]
     Indication: ASTHMA
     Dosage: 160/4.5 TWO PUFFS BID
     Route: 055
     Dates: start: 20110501

REACTIONS (1)
  - DYSPNOEA [None]
